FAERS Safety Report 8273249-8 (Version None)
Quarter: 2012Q2

REPORT INFORMATION
  Report Type: 
  Country: None (occurrence: None)
  Receive Date: 20120411
  Receipt Date: 20120403
  Transmission Date: 20120825
  Serious: Yes (Other)
  Sender: FDA-Public Use
  Company Number: US-PFIZER INC-2012084475

PATIENT
  Sex: Female
  Weight: 90.7 kg

DRUGS (3)
  1. TOVIAZ [Suspect]
     Dosage: 8 MG, 1X/DAY
     Route: 048
     Dates: start: 20120316, end: 20120330
  2. TOVIAZ [Suspect]
     Indication: BLADDER SPASM
     Dosage: 4 MG, 1X/DAY
     Route: 048
     Dates: start: 20120101, end: 20120316
  3. PHENAZOPYRIDINE [Concomitant]
     Indication: BLADDER SPASM
     Dosage: UNK

REACTIONS (11)
  - PALPITATIONS [None]
  - GAIT DISTURBANCE [None]
  - FEELING ABNORMAL [None]
  - BACK PAIN [None]
  - CONSTIPATION [None]
  - BRONCHITIS [None]
  - TREMOR [None]
  - ASTHENIA [None]
  - MYALGIA [None]
  - VISION BLURRED [None]
  - PRESYNCOPE [None]
